FAERS Safety Report 22110770 (Version 4)
Quarter: 2023Q2

REPORT INFORMATION
  Report Type: Report from Study
  Country: US (occurrence: US)
  Receive Date: 20230317
  Receipt Date: 20230504
  Transmission Date: 20230722
  Serious: No
  Sender: FDA-Public Use
  Company Number: US-002147023-NVSC2023US056339

PATIENT
  Age: 41 Year
  Sex: Male

DRUGS (2)
  1. KESIMPTA [Suspect]
     Active Substance: OFATUMUMAB
     Indication: Product used for unknown indication
     Dosage: UNK, QW
     Route: 065
     Dates: start: 20230226
  2. KESIMPTA [Suspect]
     Active Substance: OFATUMUMAB
     Dosage: UNK (SECOND INJECTION)
     Route: 065
     Dates: start: 20230305

REACTIONS (14)
  - Ill-defined disorder [Unknown]
  - Limb discomfort [Unknown]
  - Emotional disorder [Unknown]
  - Peroneal nerve palsy [Unknown]
  - Mobility decreased [Unknown]
  - Paraesthesia [Unknown]
  - Hypoaesthesia [Unknown]
  - Gastrointestinal disorder [Unknown]
  - Condition aggravated [Unknown]
  - Abdominal discomfort [Unknown]
  - Arthralgia [Unknown]
  - Muscular weakness [Unknown]
  - Anxiety [Unknown]
  - Fatigue [Unknown]

NARRATIVE: CASE EVENT DATE: 20230201
